FAERS Safety Report 9868394 (Version 3)
Quarter: 2014Q1

REPORT INFORMATION
  Report Type: Report from Study
  Country: PL (occurrence: PL)
  Receive Date: 20140204
  Receipt Date: 20140318
  Transmission Date: 20141002
  Serious: Yes (Death)
  Sender: FDA-Public Use
  Company Number: PL-SA-2013SA101741

PATIENT
  Age: 53 Year
  Sex: Female

DRUGS (6)
  1. TERIFLUNOMIDE [Suspect]
     Indication: MULTIPLE SCLEROSIS RELAPSE
     Dosage: DOSE:1 UNIT(S)
     Route: 048
     Dates: start: 20071219
  2. CANDESARTAN CILEXETIL/HYDROCHLOROTHIAZIDE [Suspect]
     Indication: HYPERTENSION
     Route: 048
     Dates: start: 20121228
  3. ACARD [Suspect]
     Indication: PROPHYLAXIS
     Route: 048
     Dates: start: 20121228
  4. PRIMACOR [Concomitant]
     Indication: HYPERTENSION
     Route: 048
     Dates: start: 20121228
  5. CONCOR COR [Concomitant]
     Indication: HYPERTENSION
     Route: 048
     Dates: start: 20121228
  6. SORBIFER DURULES [Concomitant]
     Indication: ANAEMIA
     Dosage: DOSE:1 UNIT(S)
     Route: 048
     Dates: start: 201103

REACTIONS (1)
  - Duodenal ulcer haemorrhage [Fatal]
